FAERS Safety Report 19284047 (Version 1)
Quarter: 2021Q2

REPORT INFORMATION
  Report Type: Spontaneous
  Country: GB (occurrence: GB)
  Receive Date: 20210521
  Receipt Date: 20210521
  Transmission Date: 20210717
  Serious: Yes (Life-Threatening, Hospitalization, Other)
  Sender: FDA-Public Use
  Company Number: GB-MYLANLABS-2021M1027552

PATIENT
  Age: 61 Year
  Sex: Female
  Weight: 60 kg

DRUGS (5)
  1. FERROUS GLUCONATE [Concomitant]
     Active Substance: FERROUS GLUCONATE
     Dosage: 300 MILLIGRAM, BID (ONE TWICE A DAY)
     Dates: start: 20210317, end: 20210408
  2. INDAPAMIDE. [Concomitant]
     Active Substance: INDAPAMIDE
     Indication: HYPERTENSION
     Dosage: 1.5 MILLIGRAM, PM (ONE TO BE TAKEN DAILY IN EVENING)
     Dates: start: 20210216, end: 20210305
  3. AMLODIPINE [Concomitant]
     Active Substance: AMLODIPINE BESYLATE
     Dosage: 5 MILLIGRAM, AM (ONE TO BE TAKEN EACH MORNING)
     Dates: start: 20210305
  4. INDAPAMIDE. [Suspect]
     Active Substance: INDAPAMIDE
     Indication: HYPERTENSION
     Dosage: 1.5 MILLIGRAM, AM (ONE TO BE TAKEN EACH MORNING)
     Dates: start: 20210216, end: 20210305
  5. ASTRAZENECA COVID?19 VACCINE [Concomitant]
     Active Substance: AZD-1222
     Dosage: 1 DOSAGE FORM (1 DOSE BY INTRAMUSCULAR INJECTION)
     Route: 030
     Dates: start: 20210227

REACTIONS (1)
  - Acute kidney injury [Unknown]
